FAERS Safety Report 4668736-5 (Version None)
Quarter: 2005Q2

REPORT INFORMATION
  Report Type: 
  Country: None (occurrence: None)
  Receive Date: 20050519
  Receipt Date: 20050511
  Transmission Date: 20051028
  Serious: Yes (Hospitalization)
  Sender: FDA-Public Use
  Company Number: 2005073362

PATIENT
  Sex: Female

DRUGS (1)
  1. DETROL LA [Suspect]
     Indication: HYPERTONIC BLADDER
     Dosage: ORAL
     Route: 048

REACTIONS (9)
  - BLOOD PRESSURE INCREASED [None]
  - DRY MOUTH [None]
  - HEADACHE [None]
  - HYPERTENSION [None]
  - NAUSEA [None]
  - OEDEMA PERIPHERAL [None]
  - STRESS [None]
  - TRANSPLANT [None]
  - URINARY INCONTINENCE [None]
